FAERS Safety Report 9846724 (Version 4)
Quarter: 2015Q4

REPORT INFORMATION
  Report Type: Spontaneous
  Country: US (occurrence: US)
  Receive Date: 20140127
  Receipt Date: 20151203
  Transmission Date: 20160305
  Serious: Yes (Other)
  Sender: FDA-Public Use
  Company Number: US-GILEAD-2011-0047455

PATIENT
  Age: 55 Year
  Sex: Male

DRUGS (2)
  1. COMPLERA [Suspect]
     Active Substance: EMTRICITABINE\RILPIVIRINE HYDROCHLORIDE\TENOFOVIR DISOPROXIL FUMARATE
     Indication: HIV INFECTION
     Route: 065
  2. TRUVADA [Suspect]
     Active Substance: EMTRICITABINE\TENOFOVIR DISOPROXIL FUMARATE
     Indication: HIV INFECTION
     Dosage: UNK
     Route: 065
     Dates: end: 201107

REACTIONS (12)
  - Hypertension [Unknown]
  - Diabetes mellitus [Unknown]
  - Hypothyroidism [Unknown]
  - Pruritus [Unknown]
  - Throat irritation [Unknown]
  - Dyspnoea [Unknown]
  - Mood swings [Unknown]
  - Irritability [Unknown]
  - Renal pain [Unknown]
  - Abnormal dreams [Unknown]
  - Anxiety [Unknown]
  - Insomnia [Unknown]
